FAERS Safety Report 10023139 (Version 2)
Quarter: 2014Q1

REPORT INFORMATION
  Report Type: Spontaneous
  Country: IN (occurrence: IN)
  Receive Date: 20140320
  Receipt Date: 20140320
  Transmission Date: 20141002
  Serious: Yes (Hospitalization, Other)
  Sender: FDA-Public Use
  Company Number: IN-009507513-1403IND001938

PATIENT
  Age: 31 Year
  Sex: Female
  Weight: 55 kg

DRUGS (2)
  1. FEMILON (DESOGESTREL\ETHINYL ESTRADIOL) [Suspect]
     Indication: MENSTRUATION IRREGULAR
     Dosage: UNK
     Route: 048
     Dates: start: 201310
  2. FEMILON (DESOGESTREL\ETHINYL ESTRADIOL) [Suspect]
     Indication: CONTRACEPTION

REACTIONS (4)
  - Neck pain [Recovered/Resolved]
  - Vomiting projectile [Recovered/Resolved]
  - Cerebral venous thrombosis [Recovering/Resolving]
  - Headache [Recovered/Resolved]
